FAERS Safety Report 6703586-7 (Version None)
Quarter: 2010Q2

REPORT INFORMATION
  Report Type: 
  Country: None (occurrence: None)
  Receive Date: 20100430
  Receipt Date: 20100426
  Transmission Date: 20101027
  Serious: Yes (Death)
  Sender: FDA-Public Use
  Company Number: PHHY2010US26765

PATIENT
  Sex: Male

DRUGS (2)
  1. TOBI [Suspect]
     Dosage: INHALE 5ML (300MG) VIA NEBULIZER EVERY 1-12 HOURS AS DIRECTED EVERY OTHER MONTH.
  2. PULMOZYME [Concomitant]
     Dosage: 1 MG /ML

REACTIONS (1)
  - DEATH [None]
